FAERS Safety Report 9795140 (Version 2)
Quarter: 2016Q1

REPORT INFORMATION
  Report Type: Report from Study
  Country: US (occurrence: US)
  Receive Date: 20140103
  Receipt Date: 20160311
  Transmission Date: 20160526
  Serious: Yes (Hospitalization)
  Sender: FDA-Public Use
  Company Number: US-ROCHE-1327684

PATIENT
  Sex: Female

DRUGS (12)
  1. LEXAPRO [Concomitant]
     Active Substance: ESCITALOPRAM OXALATE
     Dosage: TAKE 1 TABLET BY MOUTH DAILY
     Route: 048
  2. GLOBULIN, IMMUNE HUMAN SERUM [Concomitant]
     Route: 042
  3. CHOLECALCIFEROL [Concomitant]
     Active Substance: CHOLECALCIFEROL
     Dosage: 1 TABLET DAILY
     Route: 048
  4. DELTASONE (UNITED STATES) [Concomitant]
     Dosage: SEE B5 FOR DOSING INFORMATION
     Route: 048
  5. DELTASONE (UNITED STATES) [Concomitant]
     Dosage: TAKE 2 TABLETS BY MOUTH DAILY FOR 3 DAYS
     Route: 048
  6. CELLCEPT [Suspect]
     Active Substance: MYCOPHENOLATE MOFETIL\MYCOPHENOLATE MOFETIL HYDROCHLORIDE
     Indication: DERMATOMYOSITIS
     Route: 065
  7. TRIAMTERENE AND HYDROCHLOROTHIAZIDE [Concomitant]
     Active Substance: HYDROCHLOROTHIAZIDE\TRIAMTERENE
     Dosage: TAKE ONE CAPSULE BY MOUTH EVERY MORNING
     Route: 048
  8. PLAQUENIL [Concomitant]
     Active Substance: HYDROXYCHLOROQUINE SULFATE
     Dosage: TAKE 1 TABLET BY MOUTH TWO TIMES DAILY
     Route: 048
  9. SOLU-MEDROL [Concomitant]
     Active Substance: METHYLPREDNISOLONE SODIUM SUCCINATE
     Route: 042
  10. TYLENOL [Concomitant]
     Active Substance: ACETAMINOPHEN
     Route: 048
  11. BENADRYL [Concomitant]
     Active Substance: DIPHENHYDRAMINE HYDROCHLORIDE
     Route: 048
  12. PROGRAF [Concomitant]
     Active Substance: TACROLIMUS\TACROLIMUS ANHYDROUS
     Dosage: TAKE 1 CAPSULE BY MOUTH TWO TIMES DAILY
     Route: 048

REACTIONS (19)
  - Rash [Unknown]
  - Back pain [Unknown]
  - Radicular pain [Unknown]
  - Muscular weakness [Unknown]
  - Dyspnoea [Unknown]
  - Musculoskeletal stiffness [Unknown]
  - Arthralgia [Unknown]
  - Dermatomyositis [Unknown]
  - Ulcer haemorrhage [Unknown]
  - Fatigue [Unknown]
  - Joint stiffness [Unknown]
  - Weight decreased [Unknown]
  - Antinuclear antibody increased [Unknown]
  - Headache [Unknown]
  - Oedema peripheral [Unknown]
  - Mean cell volume decreased [Unknown]
  - Anxiety [Unknown]
  - Blood creatine phosphokinase increased [Unknown]
  - Drug ineffective [Unknown]
